FAERS Safety Report 20384734 (Version 1)
Quarter: 2022Q1

REPORT INFORMATION
  Report Type: Spontaneous
  Country: US (occurrence: None)
  Receive Date: 20220127
  Receipt Date: 20220127
  Transmission Date: 20220424
  Serious: Yes (Hospitalization)
  Sender: FDA-Public Use
  Company Number: None

PATIENT
  Sex: Female

DRUGS (1)
  1. NIVESTYM [Suspect]
     Active Substance: FILGRASTIM-AAFI
     Indication: Diffuse large B-cell lymphoma
     Dosage: 480MCGONCE DAILY UNDER THE SKIN
     Route: 058
     Dates: start: 202109

REACTIONS (1)
  - Pneumonia [None]
